FAERS Safety Report 6850406-6 (Version None)
Quarter: 2010Q3

REPORT INFORMATION
  Report Type: 
  Country: None (occurrence: None)
  Receive Date: 20100716
  Receipt Date: 20071213
  Transmission Date: 20110219
  Serious: No
  Sender: FDA-Public Use
  Company Number: US-PFIZER INC-2007087349

PATIENT

DRUGS (1)
  1. CHANTIX [Suspect]

REACTIONS (9)
  - ABDOMINAL PAIN UPPER [None]
  - ANGER [None]
  - ARTHROPATHY [None]
  - DEPRESSION [None]
  - FLATULENCE [None]
  - HEADACHE [None]
  - INSOMNIA [None]
  - IRRITABILITY [None]
  - MENTAL DISORDER [None]
